FAERS Safety Report 10646351 (Version 1)
Quarter: 2014Q4

REPORT INFORMATION
  Report Type: Spontaneous
  Country: GB (occurrence: GB)
  Receive Date: 20141211
  Receipt Date: 20141211
  Transmission Date: 20150529
  Serious: Yes (Disabling, Other)
  Sender: FDA-Public Use
  Company Number: GB-TEVA-526923ISR

PATIENT
  Sex: Male

DRUGS (6)
  1. MIRTAZAPINE. [Suspect]
     Active Substance: MIRTAZAPINE
     Indication: ANXIETY
     Dates: start: 201308
  2. MIRTAZAPINE. [Interacting]
     Active Substance: MIRTAZAPINE
     Dates: start: 201306, end: 2013
  3. QUETIAPINE FUMARATE. [Concomitant]
     Active Substance: QUETIAPINE FUMARATE
  4. LORAZEPAM. [Suspect]
     Active Substance: LORAZEPAM
  5. CHLORPROMAZINE [Suspect]
     Active Substance: CHLORPROMAZINE
  6. MIRTAZAPINE. [Interacting]
     Active Substance: MIRTAZAPINE
     Indication: DEPRESSION
     Dates: start: 201307, end: 2013

REACTIONS (9)
  - General physical health deterioration [Unknown]
  - Fear [Unknown]
  - Drug interaction [Not Recovered/Not Resolved]
  - Pain [Not Recovered/Not Resolved]
  - Drug withdrawal syndrome [Not Recovered/Not Resolved]
  - Panic reaction [Unknown]
  - Restlessness [Unknown]
  - Agitation [Unknown]
  - Anxiety [Unknown]
